FAERS Safety Report 21154493 (Version 3)
Quarter: 2025Q2

REPORT INFORMATION
  Report Type: Spontaneous
  Country: IT (occurrence: IT)
  Receive Date: 20220801
  Receipt Date: 20250614
  Transmission Date: 20250717
  Serious: Yes (Life-Threatening, Hospitalization, Congenital Anomaly, Other)
  Sender: AUROBINDO
  Company Number: IT-MACLEODS PHARMA UK LTD-MAC2022036454

PATIENT
  Sex: Female
  Weight: 0.66 kg

DRUGS (1)
  1. ESCITALOPRAM [Suspect]
     Active Substance: ESCITALOPRAM OXALATE
     Indication: Major depression
     Dosage: 10 MILLIGRAM, ONCE A DAY
     Route: 064

REACTIONS (22)
  - Ventricular septal defect [Recovered/Resolved]
  - Premature baby [Recovered/Resolved]
  - Patent ductus arteriosus [Unknown]
  - Neonatal anuria [Recovered/Resolved]
  - Cardiovascular disorder [Recovered/Resolved]
  - Metabolic acidosis [Recovered/Resolved]
  - Neonatal hypotension [Recovered/Resolved]
  - Right ventricular dilatation [Recovered/Resolved]
  - Neonatal tachycardia [Recovered/Resolved]
  - Foetal distress syndrome [Recovered/Resolved]
  - Ductus venosus agenesis [Recovered/Resolved]
  - Haemodynamic instability [Recovered/Resolved]
  - Oliguria [Recovered/Resolved]
  - Generalised oedema [Recovered/Resolved]
  - Foetal growth restriction [Recovered/Resolved]
  - Tachycardia [Recovered/Resolved]
  - Newborn persistent pulmonary hypertension [Recovered/Resolved]
  - Neonatal hypoxia [Recovered/Resolved]
  - Neonatal respiratory distress syndrome [Recovered/Resolved]
  - Hypotension [Recovered/Resolved]
  - Anuria [Recovered/Resolved]
  - Foetal exposure during pregnancy [Unknown]
